FAERS Safety Report 19205557 (Version 2)
Quarter: 2021Q2

REPORT INFORMATION
  Report Type: Spontaneous
  Country: PT (occurrence: PT)
  Receive Date: 20210503
  Receipt Date: 20210514
  Transmission Date: 20210717
  Serious: Yes (Hospitalization, Other)
  Sender: FDA-Public Use
  Company Number: PT-VIIV HEALTHCARE LIMITED-PT2021GSK089225

PATIENT
  Age: 41 Year
  Sex: Female

DRUGS (6)
  1. TIVICAY [Suspect]
     Active Substance: DOLUTEGRAVIR SODIUM
     Indication: HIV INFECTION
     Dosage: 50 MG, 1D
     Route: 048
  2. EMTRICITABINE [Suspect]
     Active Substance: EMTRICITABINE
     Indication: HIV INFECTION
     Dosage: 200 MG, 1D
     Route: 048
  3. DESMOPRESSIN [Suspect]
     Active Substance: DESMOPRESSIN
     Indication: DIABETES INSIPIDUS
     Dosage: 0.06 MG, QD
     Route: 048
  4. TENOFOVIR DISOPROXIL FUMARATE. [Suspect]
     Active Substance: TENOFOVIR DISOPROXIL FUMARATE
     Indication: HIV INFECTION
     Dosage: 245 MG, 1D
     Route: 048
  5. HYPOTONIC SALINE [GLUCOSE\SODIUM CHLORIDE] [Suspect]
     Active Substance: DEXTROSE\SODIUM CHLORIDE
     Indication: DIABETES WITH HYPEROSMOLARITY
     Dosage: UNK
  6. DESMOPRESSIN [Suspect]
     Active Substance: DESMOPRESSIN
     Dosage: 0.06 MG, BID
     Route: 048

REACTIONS (10)
  - Treatment noncompliance [Unknown]
  - Exposure during pregnancy [Unknown]
  - Abortion induced [Unknown]
  - Ataxia [Recovered/Resolved]
  - Hypernatraemia [Recovered/Resolved]
  - Renal impairment [Recovered/Resolved]
  - Diabetes insipidus [Recovered/Resolved]
  - Diabetes with hyperosmolarity [Recovered/Resolved]
  - Anaemia [Recovered/Resolved]
  - Dysmetria [Recovered/Resolved]
